FAERS Safety Report 8544428-7 (Version None)
Quarter: 2012Q3

REPORT INFORMATION
  Report Type: 
  Country: None (occurrence: None)
  Receive Date: 20120719
  Receipt Date: 20120719
  Transmission Date: 20120928
  Serious: Yes (Life-Threatening)
  Sender: FDA-Public Use
  Company Number: None

PATIENT
  Age: 24 Year
  Sex: Female
  Weight: 58.9676 kg

DRUGS (1)
  1. BEYAZ DROSPIRENONE 3 MGBAYER [Suspect]
     Indication: ENDOMETRIOSIS
     Dosage: 1 PILL DAILY PO
     Route: 048

REACTIONS (4)
  - DYSPNOEA [None]
  - PALPITATIONS [None]
  - DIZZINESS [None]
  - ARRHYTHMIA [None]
